FAERS Safety Report 10487930 (Version 3)
Quarter: 2014Q4

REPORT INFORMATION
  Report Type: Spontaneous
  Country: IT (occurrence: IT)
  Receive Date: 20141001
  Receipt Date: 20141117
  Transmission Date: 20150528
  Serious: Yes (Hospitalization)
  Sender: FDA-Public Use
  Company Number: IT-WATSON-2014-21077

PATIENT
  Age: 50 Year
  Sex: Female
  Weight: 46 kg

DRUGS (3)
  1. MINIAS [Suspect]
     Active Substance: LORMETAZEPAM
     Indication: SUICIDE ATTEMPT
     Dosage: 10 ML, TOTAL
     Route: 048
     Dates: start: 20140912, end: 20140912
  2. LEXOTAN [Suspect]
     Active Substance: BROMAZEPAM
     Indication: SUICIDE ATTEMPT
     Dosage: 10 ML, TOTAL
     Route: 048
     Dates: start: 20140912, end: 20140912
  3. LORAZEPAM (UNKNOWN) [Suspect]
     Active Substance: LORAZEPAM
     Indication: SUICIDE ATTEMPT
     Dosage: 17.5 MG, TOTAL
     Route: 048
     Dates: start: 20140912, end: 20140912

REACTIONS (7)
  - Asthenia [Recovered/Resolved]
  - Somnolence [Recovered/Resolved]
  - Presyncope [Recovered/Resolved]
  - Drug abuse [Recovered/Resolved]
  - Dysstasia [Recovered/Resolved]
  - Bradykinesia [Recovered/Resolved]
  - Bradyphrenia [Recovered/Resolved]

NARRATIVE: CASE EVENT DATE: 20140912
